FAERS Safety Report 5033675-7 (Version None)
Quarter: 2006Q2

REPORT INFORMATION
  Report Type: 
  Country: None (occurrence: None)
  Receive Date: 20060623
  Receipt Date: 20060519
  Transmission Date: 20061013
  Serious: Yes (Life-Threatening, Hospitalization)
  Sender: FDA-Public Use
  Company Number: JP-JPN-A200601629

PATIENT
  Age: 36 Year
  Sex: Male

DRUGS (8)
  1. PAXIL [Suspect]
     Indication: DEPRESSION
     Route: 048
     Dates: start: 20060324
  2. BUSCOPAN [Concomitant]
     Dosage: 10MG THREE TIMES PER DAY
     Route: 048
  3. FOIPAN [Concomitant]
     Dosage: 100MG THREE TIMES PER DAY
     Route: 048
  4. TAGAMET [Concomitant]
     Indication: GASTRIC ULCER
     Dosage: 200MG THREE TIMES PER DAY
     Route: 048
  5. SELBEX [Concomitant]
     Indication: GASTRIC ULCER
     Dosage: 50MG THREE TIMES PER DAY
     Route: 048
  6. ULCERLMIN [Concomitant]
     Indication: GASTRIC ULCER
     Dosage: .67G THREE TIMES PER DAY
     Route: 048
  7. EVAMYL [Concomitant]
     Indication: INSOMNIA
     Dosage: 1MG PER DAY
     Route: 048
  8. EVAMYL [Concomitant]
     Dosage: 18 PER DAY
     Route: 048
     Dates: start: 20060501, end: 20060501

REACTIONS (3)
  - LOSS OF CONSCIOUSNESS [None]
  - OVERDOSE [None]
  - SUICIDE ATTEMPT [None]
